FAERS Safety Report 14261101 (Version 1)
Quarter: 2017Q4

REPORT INFORMATION
  Report Type: Spontaneous
  Country: US (occurrence: US)
  Receive Date: 20171207
  Receipt Date: 20171207
  Transmission Date: 20180321
  Serious: Yes (Disabling)
  Sender: FDA-Public Use
  Company Number: None

PATIENT
  Age: 30 Year
  Sex: Female
  Weight: 88.2 kg

DRUGS (1)
  1. PARAGARD T 380A [Suspect]
     Active Substance: COPPER
     Indication: CONTRACEPTION
     Dates: start: 20170315, end: 20171127

REACTIONS (9)
  - Menorrhagia [None]
  - Coital bleeding [None]
  - Injection site pain [None]
  - Headache [None]
  - Pain [None]
  - Vulvovaginal dryness [None]
  - Vulvovaginal discomfort [None]
  - Alopecia [None]
  - Palpitations [None]

NARRATIVE: CASE EVENT DATE: 20171129
